FAERS Safety Report 16334136 (Version 2)
Quarter: 2019Q3

REPORT INFORMATION
  Report Type: Other
  Country: US (occurrence: US)
  Receive Date: 20190520
  Receipt Date: 20190717
  Transmission Date: 20191004
  Serious: No
  Sender: FDA-Public Use
  Company Number: US-AMAG PHARMACEUTICALS, INC.-AMAG201902245

PATIENT
  Age: 24 Year
  Sex: Female

DRUGS (3)
  1. PRENATAL VITAMINS [Concomitant]
     Active Substance: VITAMINS
     Indication: PREGNANCY
     Dosage: 1 TABLET
     Dates: start: 20190208, end: 20190326
  2. MONISTAT [Concomitant]
     Active Substance: MICONAZOLE NITRATE
     Indication: FUNGAL INFECTION
     Dates: start: 20190227, end: 20190304
  3. MAKENA [Suspect]
     Active Substance: HYDROXYPROGESTERONE CAPROATE
     Indication: PREMATURE DELIVERY
     Dosage: 250MG/ML, WEEKLY
     Route: 058
     Dates: start: 20190228

REACTIONS (9)
  - Haemorrhage [Recovered/Resolved]
  - Vulvovaginal discomfort [Unknown]
  - Pruritus [Unknown]
  - Injection site mass [Not Recovered/Not Resolved]
  - Injection site discolouration [Unknown]
  - Pyrexia [Not Recovered/Not Resolved]
  - Injection site warmth [Unknown]
  - Injection site pain [Not Recovered/Not Resolved]
  - Pain in extremity [Not Recovered/Not Resolved]

NARRATIVE: CASE EVENT DATE: 2019
